FAERS Safety Report 6111643 (Version 1)
Quarter: 2020Q3

REPORT INFORMATION
  Report Type: Report from Study
  Country: DK (occurrence: DK)
  Receive Date: 20060821
  Receipt Date: 20060821
  Transmission Date: 20201105
  Serious: Yes (Hospitalization)
  Sender: FDA-Public Use
  Company Number: DK-JNJFOC-20060603273

PATIENT
  Age: 79 Year
  Sex: Female
  Weight: 70 kg

DRUGS (17)
  1. PLAVIX [Concomitant]
     Active Substance: CLOPIDOGREL BISULFATE
     Indication: ACUTE MYOCARDIAL INFARCTION
     Route: 048
  2. GLUCOSAMINE [Concomitant]
     Active Substance: GLUCOSAMINE
     Indication: OSTEOPOROSIS
     Route: 048
  3. NEXIUM [Concomitant]
     Active Substance: ESOMEPRAZOLE MAGNESIUM
     Indication: GASTRITIS
     Route: 048
  4. MAREVAN [Concomitant]
     Active Substance: WARFARIN SODIUM
     Route: 048
  5. RETEPLASE [Suspect]
     Active Substance: RETEPLASE
     Indication: ACUTE MYOCARDIAL INFARCTION
  6. PLACEBO [Suspect]
     Active Substance: UNSPECIFIED INGREDIENT
     Indication: ACUTE MYOCARDIAL INFARCTION
  7. IRON [Concomitant]
     Active Substance: IRON
     Indication: ANAEMIA
  8. KALEORID [Concomitant]
     Active Substance: POTASSIUM CHLORIDE
     Indication: PROPHYLAXIS
     Route: 048
  9. SELOZOK [Concomitant]
     Active Substance: METOPROLOL SUCCINATE
     Indication: ACUTE MYOCARDIAL INFARCTION
     Route: 048
  10. MAREVAN [Concomitant]
     Active Substance: WARFARIN SODIUM
     Indication: ATRIAL FIBRILLATION
     Route: 048
  11. FUROSEMIDE. [Concomitant]
     Active Substance: FUROSEMIDE
     Indication: DYSPNOEA
     Route: 048
  12. MAGNESIUM OXIDE. [Concomitant]
     Active Substance: MAGNESIUM OXIDE
     Indication: ACUTE MYOCARDIAL INFARCTION
     Route: 048
  13. SIMVASTATIN. [Concomitant]
     Active Substance: SIMVASTATIN
     Indication: HYPERLIPIDAEMIA
     Route: 048
  14. IMDUR [Concomitant]
     Active Substance: ISOSORBIDE MONONITRATE
     Indication: ANGINA PECTORIS
     Route: 048
  15. DIGOXIN. [Concomitant]
     Active Substance: DIGOXIN
     Indication: ATRIAL FIBRILLATION
     Route: 048
  16. ABCIXIMAB [Suspect]
     Active Substance: ABCIXIMAB
     Indication: ACUTE MYOCARDIAL INFARCTION
  17. PAMOL [Concomitant]
     Active Substance: ACETAMINOPHEN
     Indication: OSTEOPOROSIS
     Route: 048

REACTIONS (3)
  - Gastritis [Recovered/Resolved]
  - Chest pain [Recovered/Resolved]
  - Carpal tunnel syndrome [Recovered/Resolved]

NARRATIVE: CASE EVENT DATE: 20060225
